FAERS Safety Report 4503699-4 (Version None)
Quarter: 2004Q3

REPORT INFORMATION
  Report Type: 
  Country: None (occurrence: None)
  Receive Date: 20040928
  Receipt Date: 20040608
  Transmission Date: 20050211
  Serious: No
  Sender: FDA-Public Use
  Company Number: 04P-163-0263216-00

PATIENT
  Age: 66 Year
  Sex: Female

DRUGS (9)
  1. HUMIRA [Suspect]
     Indication: RHEUMATOID ARTHRITIS
     Dosage: 40 MG, 1 IN 2 WK, SUBCUTANEOUS
     Route: 058
     Dates: start: 20040401, end: 20040607
  2. METHOTREXATE [Concomitant]
  3. LEFLUNOMIDE [Concomitant]
  4. FOLIC ACID [Concomitant]
  5. RISEDRONATE SODIUM [Concomitant]
  6. TRAZODONE HCL [Concomitant]
  7. CALCIUM [Concomitant]
  8. ASCORBIC ACID [Concomitant]
  9. FORTA [Concomitant]

REACTIONS (5)
  - INJECTION SITE BURNING [None]
  - INJECTION SITE REACTION [None]
  - INJECTION SITE SWELLING [None]
  - RED BLOOD CELL SEDIMENTATION RATE DECREASED [None]
  - RED BLOOD CELL SEDIMENTATION RATE INCREASED [None]
